FAERS Safety Report 13646207 (Version 1)
Quarter: 2017Q2

REPORT INFORMATION
  Report Type: Spontaneous
  Country: US (occurrence: US)
  Receive Date: 20170612
  Receipt Date: 20170612
  Transmission Date: 20170830
  Serious: Yes (Disabling)
  Sender: FDA-Public Use
  Company Number: None

PATIENT
  Age: 68 Year
  Sex: Female
  Weight: 76.95 kg

DRUGS (9)
  1. SYNTHROID [Concomitant]
     Active Substance: LEVOTHYROXINE SODIUM
  2. ASPERIN [Concomitant]
  3. BISOPROLOL [Concomitant]
     Active Substance: BISOPROLOL
  4. LISIMOPRIL [Concomitant]
  5. ASPIRIN. [Concomitant]
     Active Substance: ASPIRIN
  6. ATORVASTATIN [Concomitant]
     Active Substance: ATORVASTATIN
  7. MELOXICAM. [Concomitant]
     Active Substance: MELOXICAM
  8. RECLAST [Suspect]
     Active Substance: ZOLEDRONIC ACID
     Indication: OSTEOPOROSIS
     Dosage: OTHER FREQUENCY:Q 12 MONTHS;?
     Route: 042
     Dates: end: 20150603
  9. PRADAXA [Concomitant]
     Active Substance: DABIGATRAN ETEXILATE MESYLATE

REACTIONS (6)
  - Myalgia [None]
  - Pain [None]
  - Dizziness [None]
  - Fatigue [None]
  - Bone pain [None]
  - Visual impairment [None]

NARRATIVE: CASE EVENT DATE: 20150602
